FAERS Safety Report 17975631 (Version 1)
Quarter: 2020Q3

REPORT INFORMATION
  Report Type: Report from Study
  Country: US (occurrence: US)
  Receive Date: 20200702
  Receipt Date: 20200702
  Transmission Date: 20201103
  Serious: Yes (Death)
  Sender: FDA-Public Use
  Company Number: NVSC2020US186393

PATIENT
  Sex: Female

DRUGS (1)
  1. TREPROSTINIL. [Suspect]
     Active Substance: TREPROSTINIL
     Indication: PULMONARY ARTERIAL HYPERTENSION
     Dosage: 41.25 NANOGRAM PER KILOGRAM (NG/KG/MIN), CONT
     Route: 042
     Dates: start: 20190710

REACTIONS (1)
  - COVID-19 [Fatal]
